FAERS Safety Report 17603072 (Version 1)
Quarter: 2020Q1

REPORT INFORMATION
  Report Type: Spontaneous
  Country: CA (occurrence: CA)
  Receive Date: 20200330
  Receipt Date: 20200330
  Transmission Date: 20200409
  Serious: Yes (Other)
  Sender: FDA-Public Use
  Company Number: CA-ROCHE-2571967

PATIENT
  Age: 42 Year
  Sex: Female

DRUGS (6)
  1. DOCETAXEL. [Suspect]
     Active Substance: DOCETAXEL
     Indication: BREAST CANCER
     Route: 065
  2. TRASTUZUMAB. [Suspect]
     Active Substance: TRASTUZUMAB
     Indication: BREAST CANCER
     Route: 065
  3. MYCOPHENOLATE [Suspect]
     Active Substance: MYCOPHENOLIC ACID
     Indication: ORGANISING PNEUMONIA
     Route: 065
  4. PROCYTOX [Suspect]
     Active Substance: CYCLOPHOSPHAMIDE
     Indication: BREAST CANCER
     Dosage: 2000 MG/VIAL
     Route: 065
  5. APO-PREDNISONE [Suspect]
     Active Substance: PREDNISONE
     Indication: ORGANISING PNEUMONIA
     Route: 048
  6. APO-PREDNISONE [Suspect]
     Active Substance: PREDNISONE
     Route: 048

REACTIONS (1)
  - Biopsy lung abnormal [Unknown]
